FAERS Safety Report 16624152 (Version 1)
Quarter: 2019Q3

REPORT INFORMATION
  Report Type: Spontaneous
  Country: FR (occurrence: FR)
  Receive Date: 20190724
  Receipt Date: 20190724
  Transmission Date: 20191004
  Serious: Yes (Other)
  Sender: FDA-Public Use
  Company Number: FR-IPSEN BIOPHARMACEUTICALS, INC.-2019-12869

PATIENT
  Age: 25 Year
  Sex: Male

DRUGS (2)
  1. LANREOTIDE AUTOGEL [Suspect]
     Active Substance: LANREOTIDE
     Indication: ACROMEGALY
     Route: 058
  2. LANREOTIDE AUTOGEL [Suspect]
     Active Substance: LANREOTIDE
     Route: 058

REACTIONS (1)
  - Myofascitis [Recovered/Resolved]
